FAERS Safety Report 15796581 (Version 2)
Quarter: 2019Q1

REPORT INFORMATION
  Report Type: Spontaneous
  Country: US (occurrence: US)
  Receive Date: 20190108
  Receipt Date: 20190316
  Transmission Date: 20190417
  Serious: No
  Sender: FDA-Public Use
  Company Number: US-TEVA-2018-US-990317

PATIENT
  Sex: Female

DRUGS (1)
  1. CLOTRIMAZOLE AND BETAMETHASON DIPROPIONATE [Suspect]
     Active Substance: BETAMETHASONE\CLOTRIMAZOLE
     Indication: VULVOVAGINAL PRURITUS
     Dosage: BETAMETHASONE 0.05 %+ CLOTRIMAZOLE 1 %
     Route: 065

REACTIONS (2)
  - Vulvovaginal pain [Unknown]
  - Drug ineffective [Unknown]
